FAERS Safety Report 12791163 (Version 1)
Quarter: 2016Q3

REPORT INFORMATION
  Report Type: Spontaneous
  Country: US (occurrence: US)
  Receive Date: 20160929
  Receipt Date: 20160929
  Transmission Date: 20161109
  Serious: No
  Sender: FDA-Public Use
  Company Number: US-PAR PHARMACEUTICAL, INC-2015SCPR014492

PATIENT

DRUGS (2)
  1. CLOMIPHENE CITRATE. [Suspect]
     Active Substance: CLOMIPHENE CITRATE
     Dosage: HALF TABLET, EVERY OTHER DAY
     Route: 048
  2. CLOMIPHENE CITRATE. [Suspect]
     Active Substance: CLOMIPHENE CITRATE
     Indication: ANDROGEN DEFICIENCY
     Dosage: HALF TABLET, EVERY OTHER DAY
     Route: 048
     Dates: start: 201411, end: 2014

REACTIONS (2)
  - Rash pruritic [Recovered/Resolved]
  - Product use issue [Unknown]

NARRATIVE: CASE EVENT DATE: 201411
